FAERS Safety Report 11594943 (Version 1)
Quarter: 2015Q4

REPORT INFORMATION
  Report Type: Spontaneous
  Country: SI (occurrence: SI)
  Receive Date: 20151005
  Receipt Date: 20151005
  Transmission Date: 20160304
  Serious: Yes (Other)
  Sender: FDA-Public Use
  Company Number: SI-ABBVIE-15P-261-1475831-00

PATIENT
  Age: 2 Year
  Sex: Male

DRUGS (4)
  1. DEPAKINE [Suspect]
     Active Substance: VALPROATE SODIUM
     Route: 048
  2. DEPAKINE [Suspect]
     Active Substance: VALPROATE SODIUM
     Route: 048
  3. DEPAKINE [Suspect]
     Active Substance: VALPROATE SODIUM
     Indication: MYOCLONIC EPILEPSY
     Route: 048
     Dates: start: 20150914
  4. DEPAKINE [Suspect]
     Active Substance: VALPROATE SODIUM
     Route: 048

REACTIONS (6)
  - Myoclonic epilepsy [Unknown]
  - Dizziness [Recovered/Resolved]
  - Alopecia [Not Recovered/Not Resolved]
  - Gingival bleeding [Not Recovered/Not Resolved]
  - Abnormal behaviour [Recovered/Resolved]
  - Increased appetite [Unknown]
